FAERS Safety Report 4311240-4 (Version None)
Quarter: 2004Q1

REPORT INFORMATION
  Report Type: 
  Country: None (occurrence: None)
  Receive Date: 20040304
  Receipt Date: 20040226
  Transmission Date: 20041129
  Serious: Yes (Death, Hospitalization)
  Sender: FDA-Public Use
  Company Number: WAES 0402USA02029

PATIENT
  Age: 35 Year
  Sex: Male

DRUGS (1)
  1. STROMECTOL [Suspect]
     Route: 048
     Dates: start: 20031128, end: 20031128

REACTIONS (5)
  - ARTHRALGIA [None]
  - ASTHENIA [None]
  - COMA [None]
  - DEATH [None]
  - HEADACHE [None]
